FAERS Safety Report 11934007 (Version 1)
Quarter: 2016Q1

REPORT INFORMATION
  Report Type: Spontaneous
  Country: JP (occurrence: JP)
  Receive Date: 20160121
  Receipt Date: 20160121
  Transmission Date: 20160526
  Serious: Yes (Other)
  Sender: FDA-Public Use
  Company Number: PHBS1995JP04660

PATIENT
  Age: 69 Year
  Sex: Female
  Weight: 69 kg

DRUGS (3)
  1. ULGUT [Concomitant]
     Route: 065
     Dates: start: 19940627, end: 19950426
  2. VOLTAREN [Suspect]
     Active Substance: DICLOFENAC SODIUM
     Route: 048
     Dates: start: 19940624, end: 19950426
  3. CIBACEN [Suspect]
     Active Substance: BENAZEPRIL HYDROCHLORIDE
     Route: 048
     Dates: start: 19941027, end: 19941124

REACTIONS (2)
  - Oropharyngeal discomfort [Recovered/Resolved]
  - Blood triglycerides increased [Recovering/Resolving]

NARRATIVE: CASE EVENT DATE: 19941110
